FAERS Safety Report 9005371 (Version 5)
Quarter: 2013Q2

REPORT INFORMATION
  Report Type: Report from Study
  Country: US (occurrence: US)
  Receive Date: 20130108
  Receipt Date: 20130404
  Transmission Date: 20140414
  Serious: Yes (Hospitalization, Other)
  Sender: FDA-Public Use
  Company Number: US-VERTEX PHARMACEUTICALS INC.-2013-000251

PATIENT
  Age: 62 Year
  Sex: Female
  Weight: 63.5 kg

DRUGS (14)
  1. VX-950 (TELAPREVIR) [Suspect]
     Indication: HEPATITIS C
     Dosage: 750 MG, TID
     Route: 048
     Dates: start: 20130104
  2. PEGASYS [Suspect]
     Indication: HEPATITIS C
     Dosage: 180 ?G, QW
     Route: 058
     Dates: start: 20130104
  3. RIBASPHERE [Suspect]
     Indication: HEPATITIS C
     Dosage: 3TABS IN AM, 2 TABS IN PM
     Route: 048
     Dates: start: 20130104
  4. XANAX [Concomitant]
     Dosage: 0.5 MG, UNK
  5. CENTRUM SILVER [Concomitant]
  6. LISINOPRIL [Concomitant]
     Indication: HYPERTENSION
     Dosage: 20 MG, QD
     Route: 048
  7. NEXIUM [Concomitant]
     Dosage: 40 UNK, UNK
  8. CALCIUM [Concomitant]
     Dosage: 600 MG, UNK
  9. CRANBERRY [Concomitant]
     Dosage: 20 MG, UNK
  10. MILK THISTLE [Concomitant]
     Dosage: 175 MG, UNK
  11. ATIVAN [Concomitant]
     Indication: RESTLESS LEGS SYNDROME
  12. LORAZEPAM [Concomitant]
     Dosage: 1 MG, BID
  13. CEFTIN [Concomitant]
     Dosage: 500 MG, BID FOR 10 DAYS
  14. OMEPRAZOLE [Concomitant]
     Dosage: 20 MG, QD

REACTIONS (14)
  - Cellulitis [Unknown]
  - Anaemia [Unknown]
  - Blood count abnormal [Not Recovered/Not Resolved]
  - Leukopenia [Recovered/Resolved]
  - Influenza like illness [Recovered/Resolved]
  - Eating disorder [Not Recovered/Not Resolved]
  - Somnolence [Not Recovered/Not Resolved]
  - Tremor [Recovered/Resolved]
  - Chills [Recovered/Resolved]
  - Rash [Not Recovered/Not Resolved]
  - Diarrhoea [Not Recovered/Not Resolved]
  - Nausea [Not Recovered/Not Resolved]
  - Vomiting [Not Recovered/Not Resolved]
  - Pruritus [Not Recovered/Not Resolved]
